FAERS Safety Report 8445392-1 (Version None)
Quarter: 2012Q2

REPORT INFORMATION
  Report Type: 
  Country: None (occurrence: None)
  Receive Date: 20120618
  Receipt Date: 20111025
  Transmission Date: 20120825
  Serious: No
  Sender: FDA-Public Use
  Company Number: US-TEVA-2011005523

PATIENT
  Sex: Female
  Weight: 79.45 kg

DRUGS (8)
  1. EXEMESTANE [Suspect]
     Indication: BREAST CANCER
     Route: 048
     Dates: start: 20110701, end: 20110901
  2. AZATHIOPRINE [Concomitant]
  3. TAMOXIFEN [Suspect]
     Indication: BREAST CANCER
     Dosage: 20 MILLIGRAM;
     Route: 048
     Dates: start: 20110901, end: 20111014
  4. IMURAN [Concomitant]
  5. TAMOXIFEN [Suspect]
     Dosage: 20 MILLIGRAM;
     Route: 048
     Dates: start: 20111018
  6. FENTANYL [Concomitant]
  7. FENTORA [Suspect]
     Indication: SYSTEMIC LUPUS ERYTHEMATOSUS
     Route: 002
     Dates: start: 20080101
  8. ASPIRIN [Concomitant]

REACTIONS (2)
  - HYPERHIDROSIS [None]
  - HOT FLUSH [None]
